FAERS Safety Report 20129776 (Version 1)
Quarter: 2021Q4

REPORT INFORMATION
  Report Type: Spontaneous
  Country: US (occurrence: None)
  Receive Date: 20211129
  Receipt Date: 20211129
  Transmission Date: 20220303
  Serious: Yes (Disabling)
  Sender: FDA-Public Use
  Company Number: None

PATIENT
  Age: 57 Year
  Sex: Female
  Weight: 113.85 kg

DRUGS (1)
  1. LISINOPRIL [Suspect]
     Active Substance: LISINOPRIL
     Indication: Hypertension
     Dosage: FREQUENCY : TWICE A DAY;?
     Route: 048
     Dates: end: 20211124

REACTIONS (11)
  - Product substitution issue [None]
  - Illness [None]
  - Feeling abnormal [None]
  - Feeling hot [None]
  - Temperature intolerance [None]
  - Palpitations [None]
  - Chest pain [None]
  - Angina pectoris [None]
  - Gastrooesophageal reflux disease [None]
  - Abdominal pain upper [None]
  - Product complaint [None]

NARRATIVE: CASE EVENT DATE: 20210718
